FAERS Safety Report 17677677 (Version 1)
Quarter: 2020Q2

REPORT INFORMATION
  Report Type: Spontaneous
  Country: FR (occurrence: FR)
  Receive Date: 20200416
  Receipt Date: 20200416
  Transmission Date: 20200714
  Serious: Yes (Hospitalization)
  Sender: FDA-Public Use
  Company Number: FR-CANTON LABORATORIES, LLC-2082932

PATIENT
  Age: 59 Year
  Sex: Male

DRUGS (2)
  1. NEXAVAR [Suspect]
     Active Substance: SORAFENIB
     Route: 048
     Dates: start: 20200301, end: 20200314
  2. NAPROSYN [Suspect]
     Active Substance: NAPROXEN
     Indication: GAIT DISTURBANCE
     Route: 048
     Dates: start: 20200310, end: 20200313

REACTIONS (4)
  - Blister [Recovering/Resolving]
  - Myalgia [Recovering/Resolving]
  - Hepatocellular injury [Recovering/Resolving]
  - Rash maculo-papular [Recovering/Resolving]

NARRATIVE: CASE EVENT DATE: 202003
